FAERS Safety Report 5860232-2 (Version None)
Quarter: 2008Q3

REPORT INFORMATION
  Report Type: 
  Country: None (occurrence: None)
  Receive Date: 20080827
  Receipt Date: 20080819
  Transmission Date: 20090109
  Serious: Yes (Hospitalization)
  Sender: FDA-Public Use
  Company Number: US-AMGEN-US302737

PATIENT
  Age: 55 Year
  Sex: Male
  Weight: 68 kg

DRUGS (4)
  1. PANITUMUMAB [Suspect]
     Indication: OESOPHAGEAL CARCINOMA
     Route: 042
     Dates: start: 20080715
  2. CAPECITABINE [Suspect]
     Dates: start: 20080715
  3. RADIATION THERAPY [Suspect]
  4. OXALIPLATIN [Concomitant]
     Dates: start: 20080715

REACTIONS (1)
  - OESOPHAGITIS [None]
